FAERS Safety Report 13689587 (Version 1)
Quarter: 2017Q2

REPORT INFORMATION
  Report Type: Spontaneous
  Country: US (occurrence: US)
  Receive Date: 20170623
  Receipt Date: 20170623
  Transmission Date: 20170830
  Serious: No
  Sender: FDA-Public Use
  Company Number: None

PATIENT
  Age: 60 Year
  Sex: Female

DRUGS (2)
  1. IBRANCE [Suspect]
     Active Substance: PALBOCICLIB
     Indication: BREAST CANCER
     Dosage: 75MG ONCE A DAY FOR 21 DAYS AND 7 DAYS OFF BY MOUTH
     Route: 048
     Dates: start: 20161209, end: 20170601
  2. LETROZOLE 2.5MG ACCORD [Suspect]
     Active Substance: LETROZOLE
     Indication: BREAST CANCER
     Route: 048
     Dates: start: 20161209, end: 20170601

REACTIONS (2)
  - Fatigue [None]
  - Bone pain [None]

NARRATIVE: CASE EVENT DATE: 20170601
